FAERS Safety Report 8540674-7 (Version None)
Quarter: 2012Q3

REPORT INFORMATION
  Report Type: 
  Country: None (occurrence: None)
  Receive Date: 20120726
  Receipt Date: 20120628
  Transmission Date: 20120928
  Serious: No
  Sender: FDA-Public Use
  Company Number: US-009507513-1207USA006638

PATIENT

DRUGS (2)
  1. CLARITIN [Suspect]
     Indication: RASH
     Dosage: 10 MG, QPM
     Dates: start: 20120601
  2. CLARITIN [Suspect]
     Indication: MEDICAL OBSERVATION

REACTIONS (3)
  - EXPIRED DRUG ADMINISTERED [None]
  - OFF LABEL USE [None]
  - SOMNOLENCE [None]
